FAERS Safety Report 9438976 (Version 1)
Quarter: 2013Q3

REPORT INFORMATION
  Report Type: Spontaneous
  Country: GB (occurrence: GB)
  Receive Date: 20130802
  Receipt Date: 20130802
  Transmission Date: 20140515
  Serious: Yes (Other)
  Sender: FDA-Public Use
  Company Number: PHHY2013GB080418

PATIENT
  Age: 72 Year
  Sex: Female
  Weight: 74.4 kg

DRUGS (13)
  1. METFORMIN [Suspect]
     Indication: TYPE 2 DIABETES MELLITUS
     Dosage: 750MG QD AND 500MG QD. STARTED TWO YEARS AGO.
     Dates: end: 20130521
  2. METFORMIN [Suspect]
     Dosage: 750MG QD AND 500MG QD. STARTED TWO YEARS AGO.
     Dates: end: 20130521
  3. MONOMIL XL [Concomitant]
     Dosage: 60MG- HALF ONCE DAILY.
  4. CANDESARTAN [Concomitant]
     Dosage: 8 MG, QD
  5. ATORVASTATIN [Concomitant]
     Dosage: 20 MG, QD
  6. ASPIRIN [Concomitant]
     Dosage: 75 MG, QD
  7. LEVOTHYROXINE [Concomitant]
     Dosage: 25MG ONCE A DAY. 100MG ONCE A DAY.
  8. LEVOTHYROXINE [Concomitant]
     Dosage: 25MG ONCE A DAY. 100MG ONCE A DAY.
  9. CO-PROXAMOL [Concomitant]
     Dosage: 2 DF, PRN AS NEEDED
  10. GLICLAZIDE [Concomitant]
     Dosage: 80 MG, BID
  11. ATENOLOL [Concomitant]
     Dosage: 25 MG, QD
  12. PANTOPRAZOLE [Concomitant]
     Dosage: 20 MG, QD
  13. DILCARDIA SR [Concomitant]
     Dosage: 90 MG, BID

REACTIONS (1)
  - Faecal incontinence [Recovered/Resolved]
